FAERS Safety Report 10065028 (Version 2)
Quarter: 2014Q2

REPORT INFORMATION
  Report Type: Spontaneous
  Country: CH (occurrence: CH)
  Receive Date: 20140408
  Receipt Date: 20140414
  Transmission Date: 20141212
  Serious: Yes (Other)
  Sender: FDA-Public Use
  Company Number: PHHY2014CH041290

PATIENT
  Age: 56 Year
  Sex: Male

DRUGS (4)
  1. TRILEPTAL [Suspect]
     Indication: EPILEPSY
     Dosage: 600 MG, TID
  2. DEPAKINE CHRONO [Concomitant]
     Dosage: 2 DF, BID
  3. STILNOX [Concomitant]
     Dosage: 1-2 IN THE EVENING
  4. TEMESTA [Concomitant]
     Dosage: AS NEEDED 01 IN THE EVENING

REACTIONS (15)
  - Lymphoma [Unknown]
  - Local swelling [Unknown]
  - Dysphagia [Unknown]
  - Petit mal epilepsy [Unknown]
  - Insomnia [Unknown]
  - Libido decreased [Unknown]
  - Sexual dysfunction [Unknown]
  - Faecal volume decreased [Unknown]
  - Myopathy [Unknown]
  - Fall [Unknown]
  - Abdominal pain [Unknown]
  - Vomiting [Unknown]
  - Headache [Unknown]
  - Decreased appetite [Unknown]
  - Tremor [Unknown]
